FAERS Safety Report 7684070-3 (Version None)
Quarter: 2011Q3

REPORT INFORMATION
  Report Type: 
  Country: None (occurrence: None)
  Receive Date: 20110815
  Receipt Date: 20110326
  Transmission Date: 20111222
  Serious: Yes (Other)
  Sender: FDA-Public Use
  Company Number: US-BAXTER-2011BH008653

PATIENT
  Sex: Female

DRUGS (4)
  1. DACTINOMYCIN [Suspect]
     Indication: PRODUCT USED FOR UNKNOWN INDICATION
     Route: 065
  2. MESNA [Suspect]
     Indication: RHABDOMYOSARCOMA
     Route: 065
  3. VINCRISTINE [Suspect]
     Indication: RHABDOMYOSARCOMA
     Route: 065
  4. CYTOXAN [Suspect]
     Indication: RHABDOMYOSARCOMA
     Route: 065

REACTIONS (3)
  - MATERNAL EXPOSURE DURING PREGNANCY [None]
  - PREMATURE DELIVERY [None]
  - PLACENTA PRAEVIA [None]
